FAERS Safety Report 16367734 (Version 2)
Quarter: 2019Q2

REPORT INFORMATION
  Report Type: Spontaneous
  Country: ES (occurrence: ES)
  Receive Date: 20190529
  Receipt Date: 20190614
  Transmission Date: 20190711
  Serious: Yes (Life-Threatening, Hospitalization, Other)
  Sender: FDA-Public Use
  Company Number: PHHY2019ES121112

PATIENT
  Age: 73 Year
  Sex: Female

DRUGS (6)
  1. ACE INHIBITORS [Concomitant]
     Active Substance: UNSPECIFIED INGREDIENT
     Indication: PRODUCT USED FOR UNKNOWN INDICATION
     Route: 065
  2. ASPIRIN. [Concomitant]
     Active Substance: ASPIRIN
     Indication: PRODUCT USED FOR UNKNOWN INDICATION
     Dosage: 100 MG, UNK
     Route: 065
  3. ATORVASTATIN [Interacting]
     Active Substance: ATORVASTATIN
     Indication: MYOCARDIAL INFARCTION
  4. BISOPROLOL [Concomitant]
     Active Substance: BISOPROLOL
     Indication: PRODUCT USED FOR UNKNOWN INDICATION
     Dosage: 5 MG, UNK
     Route: 065
  5. ATORVASTATIN [Suspect]
     Active Substance: ATORVASTATIN
     Indication: DYSLIPIDAEMIA
     Dosage: 80 MG, UNK
     Route: 065
  6. TICAGRELOR. [Interacting]
     Active Substance: TICAGRELOR
     Indication: PRODUCT USED FOR UNKNOWN INDICATION
     Dosage: 90 MG, UNK
     Route: 065

REACTIONS (16)
  - Drug interaction [Unknown]
  - Metabolic acidosis [Recovered/Resolved]
  - Fibromyalgia [Unknown]
  - Myalgia [Unknown]
  - Rhabdomyolysis [Unknown]
  - Myopathy [Unknown]
  - Gait disturbance [Unknown]
  - Nausea [Unknown]
  - Proteinuria [Unknown]
  - Acute kidney injury [Recovering/Resolving]
  - Pain in extremity [Unknown]
  - Vomiting [Unknown]
  - Haematuria [Unknown]
  - Hepatotoxicity [Unknown]
  - Asthenia [Unknown]
  - Dehydration [Unknown]
